FAERS Safety Report 5092636-2 (Version None)
Quarter: 2006Q3

REPORT INFORMATION
  Report Type: 
  Country: None (occurrence: None)
  Receive Date: 20060727
  Receipt Date: 20060606
  Transmission Date: 20061208
  Serious: Yes (Other)
  Sender: FDA-Public Use
  Company Number: 2006074166

PATIENT
  Age: 35 Year
  Sex: Male
  Weight: 72.5755 kg

DRUGS (2)
  1. LYRICA [Suspect]
     Indication: NEURALGIA
     Dosage: 600 MG (200 MG, 3 IN 1 D)
     Dates: start: 20051101, end: 20060601
  2. GABAPENTIN [Concomitant]

REACTIONS (2)
  - SWELLING FACE [None]
  - WEIGHT INCREASED [None]
